FAERS Safety Report 11709856 (Version 2)
Quarter: 2015Q4

REPORT INFORMATION
  Report Type: Spontaneous
  Country: US (occurrence: US)
  Receive Date: 20151104
  Receipt Date: 20151110
  Transmission Date: 20160304
  Serious: No
  Sender: FDA-Public Use
  Company Number: US-ELI_LILLY_AND_COMPANY-US201107001859

PATIENT
  Age: 70 Year
  Sex: Female

DRUGS (5)
  1. COZAAR [Concomitant]
     Active Substance: LOSARTAN POTASSIUM
  2. LIPITOR [Concomitant]
     Active Substance: ATORVASTATIN CALCIUM
  3. PLAVIX [Concomitant]
     Active Substance: CLOPIDOGREL BISULFATE
  4. FORTEO [Suspect]
     Active Substance: TERIPARATIDE
     Indication: OSTEOPOROSIS
     Dosage: 20 UG, QD
     Route: 065
     Dates: start: 20101226
  5. FORTEO [Suspect]
     Active Substance: TERIPARATIDE
     Dosage: 20 UG, QD
     Route: 065

REACTIONS (9)
  - Pain [Unknown]
  - Mass [Unknown]
  - Breast calcifications [Unknown]
  - Lower extremity mass [Unknown]
  - Lower extremity mass [Unknown]
  - Local swelling [Unknown]
  - Skin discolouration [Unknown]
  - Induration [Unknown]
  - Road traffic accident [Unknown]

NARRATIVE: CASE EVENT DATE: 201108
